FAERS Safety Report 10218551 (Version 2)
Quarter: 2014Q2

REPORT INFORMATION
  Report Type: Spontaneous
  Country: JP (occurrence: JP)
  Receive Date: 20140605
  Receipt Date: 20140624
  Transmission Date: 20141212
  Serious: Yes (Hospitalization, Other)
  Sender: FDA-Public Use
  Company Number: JP-PFIZER INC-2014146820

PATIENT
  Age: 21 Year
  Sex: Male

DRUGS (2)
  1. SOLU-MEDROL [Suspect]
     Indication: OPTIC NEURITIS
     Dosage: 1 G, DAILY
     Route: 042
  2. PREDNISOLONE [Concomitant]
     Indication: OPTIC NEURITIS
     Dosage: 50 MG, DAILY

REACTIONS (3)
  - Suspected transmission of an infectious agent via product [Recovered/Resolved]
  - Acute hepatitis C [Recovered/Resolved]
  - Hepatitis fulminant [Recovering/Resolving]
